FAERS Safety Report 19171247 (Version 4)
Quarter: 2022Q1

REPORT INFORMATION
  Report Type: Report from Study
  Country: CA (occurrence: CA)
  Receive Date: 20210423
  Receipt Date: 20220120
  Transmission Date: 20220423
  Serious: Yes (Hospitalization, Other)
  Sender: FDA-Public Use
  Company Number: CA-ABBVIE-21K-028-3871882-00

PATIENT
  Age: 68 Year
  Sex: Female

DRUGS (2)
  1. SKYRIZI [Suspect]
     Active Substance: RISANKIZUMAB-RZAA
     Indication: Psoriasis
     Dosage: 75 MG/0.83 ML
     Route: 058
     Dates: start: 20200204, end: 20211018
  2. SKYRIZI [Suspect]
     Active Substance: RISANKIZUMAB-RZAA
     Dosage: 75 MG/0.83 ML
     Route: 058
     Dates: start: 20211019

REACTIONS (11)
  - Gastrointestinal stromal tumour [Unknown]
  - Cholecystectomy [Unknown]
  - Pancreatic neoplasm [Unknown]
  - Hernia [Unknown]
  - Weight decreased [Not Recovered/Not Resolved]
  - Bladder disorder [Unknown]
  - Skin disorder [Unknown]
  - Incorrect dose administered [Recovered/Resolved]
  - Diarrhoea [Recovered/Resolved]
  - Haemorrhage [Unknown]
  - Psoriasis [Unknown]

NARRATIVE: CASE EVENT DATE: 20201201
